FAERS Safety Report 7962806-1 (Version None)
Quarter: 2011Q4

REPORT INFORMATION
  Report Type: 
  Country: None (occurrence: None)
  Receive Date: 20111207
  Receipt Date: 20111125
  Transmission Date: 20120403
  Serious: Yes (Other)
  Sender: FDA-Public Use
  Company Number: FR-ACTELION-A-CH2011-57554

PATIENT
  Sex: Male

DRUGS (6)
  1. KALETRA [Concomitant]
  2. TRACLEER [Suspect]
     Indication: PULMONARY ARTERIAL HYPERTENSION
     Dosage: 62.5 MG, BID
     Route: 048
     Dates: start: 20110728, end: 20110812
  3. SYMBICORT [Concomitant]
  4. MORPHINE SULFATE [Concomitant]
  5. PENTACARINAT [Concomitant]
  6. ABACAVIR SULFATE [Concomitant]

REACTIONS (2)
  - ABDOMINAL PAIN [None]
  - CONSTIPATION [None]
